FAERS Safety Report 8360263-7 (Version None)
Quarter: 2012Q1

REPORT INFORMATION
  Report Type: 
  Country: None (occurrence: None)
  Receive Date: 20120315
  Receipt Date: 20110304
  Transmission Date: 20120608
  Serious: Yes (Other)
  Sender: FDA-Public Use
  Company Number: PHHY2011US18343

PATIENT
  Age: 40 Year
  Sex: Female

DRUGS (1)
  1. GILENYA [Suspect]
     Indication: RELAPSING-REMITTING MULTIPLE SCLEROSIS
     Dosage: 0.5 MG, DAILY, ORAL
     Route: 048
     Dates: start: 20110303

REACTIONS (7)
  - PULMONARY CONGESTION [None]
  - BLOOD PRESSURE INCREASED [None]
  - INFLUENZA [None]
  - HEADACHE [None]
  - PAIN [None]
  - RHINALGIA [None]
  - NASAL CONGESTION [None]
